FAERS Safety Report 5955944-6 (Version None)
Quarter: 2008Q4

REPORT INFORMATION
  Report Type: 
  Country: None (occurrence: None)
  Receive Date: 20081112
  Receipt Date: 20081027
  Transmission Date: 20090506
  Serious: Yes (Life-Threatening, Hospitalization)
  Sender: FDA-Public Use
  Company Number: USA_32591_2008

PATIENT
  Age: 46 Year
  Sex: Female

DRUGS (8)
  1. CITALOPRAM HYDROBROMIDE [Suspect]
     Indication: DEPRESSION
     Dosage: 20 MG QD ORAL
     Route: 048
  2. FLUCONAZOLE [Suspect]
     Indication: DRUG USE FOR UNKNOWN INDICATION
     Dosage: 200 MG QD
  3. ESOMEPRAZOLE MAGNESIUM [Suspect]
     Indication: DRUG USE FOR UNKNOWN INDICATION
     Dosage: 20 MG QD
  4. DAPSONE [Concomitant]
  5. ACYCLOVIR [Concomitant]
  6. DEXAMETHASONE 0.5MG TAB [Concomitant]
  7. ZOLPIDEM [Concomitant]
  8. HYDROCHLOROTHIAZIDE W/LOSARTAN [Concomitant]

REACTIONS (14)
  - AREFLEXIA [None]
  - BLOOD ALBUMIN DECREASED [None]
  - BLOOD POTASSIUM DECREASED [None]
  - BLOOD PRESSURE INCREASED [None]
  - BLUNTED AFFECT [None]
  - CONDITION AGGRAVATED [None]
  - CONFUSIONAL STATE [None]
  - CONVULSION [None]
  - DEPRESSION [None]
  - DRUG TOXICITY [None]
  - HAEMOGLOBIN DECREASED [None]
  - MEMORY IMPAIRMENT [None]
  - PERSEVERATION [None]
  - STEM CELL TRANSPLANT [None]
